FAERS Safety Report 20343351 (Version 1)
Quarter: 2022Q1

REPORT INFORMATION
  Report Type: Spontaneous
  Country: AM (occurrence: AM)
  Receive Date: 20220117
  Receipt Date: 20220117
  Transmission Date: 20220423
  Serious: Yes (Hospitalization, Other)
  Sender: FDA-Public Use
  Company Number: AM-SUN PHARMACEUTICAL INDUSTRIES LTD-2022R1-323332

PATIENT
  Age: 43 Year
  Sex: Male

DRUGS (1)
  1. DEXAMETHASONE [Suspect]
     Active Substance: DEXAMETHASONE
     Indication: Steroid therapy
     Dosage: 12 MILLIGRAM, DAILY
     Route: 065

REACTIONS (4)
  - Condition aggravated [Recovering/Resolving]
  - Diabetes mellitus [Recovering/Resolving]
  - Tachycardia [Recovering/Resolving]
  - Oedema peripheral [Recovering/Resolving]
